FAERS Safety Report 7472274-4 (Version None)
Quarter: 2011Q1

REPORT INFORMATION
  Report Type: 
  Country: None (occurrence: None)
  Receive Date: 20110302
  Receipt Date: 20100927
  Transmission Date: 20110831
  Serious: Yes (Life-Threatening, Other)
  Sender: FDA-Public Use
  Company Number: 163-21880-10080979

PATIENT
  Age: 81 Year
  Sex: Female

DRUGS (17)
  1. REVLIMID [Suspect]
     Indication: MYELODYSPLASTIC SYNDROME
     Dosage: 5 MG, 1 IN 1 D, PO
     Route: 048
     Dates: start: 20100601, end: 20100101
  2. CENTRUM SILVER (CENTRUM SILVER) [Concomitant]
  3. IVIG (IMMUNOGLOBULIN) [Concomitant]
  4. FOSAMAX [Concomitant]
  5. CHONDROITIN SULFATE (CHONDROITIN SULFATE) [Concomitant]
  6. ENALAPRIL MALEATE [Concomitant]
  7. HYDROCHLOROTHIAZIDE [Concomitant]
  8. LIALDA [Concomitant]
  9. ULTRAM [Concomitant]
  10. VERELAN [Concomitant]
  11. REVLIMID [Suspect]
  12. CALTRATE (CALCIUM CARBONATE) [Concomitant]
  13. CRANBERRY (CRANBERRY BERCO) [Concomitant]
  14. IBUPROFEN (ADVIL) [Concomitant]
  15. ACETAMINOPHEN [Concomitant]
  16. SERTRALINE HCL (SERTRALINE HYDROCHLORIDE) [Concomitant]
  17. DARVOCET-N (PROPACET) [Concomitant]

REACTIONS (4)
  - THROMBOCYTOPENIA [None]
  - PANCYTOPENIA [None]
  - DRUG INEFFECTIVE [None]
  - FATIGUE [None]
